FAERS Safety Report 14787350 (Version 1)
Quarter: 2018Q2

REPORT INFORMATION
  Report Type: Spontaneous
  Country: NL (occurrence: NL)
  Receive Date: 20180421
  Receipt Date: 20180421
  Transmission Date: 20180711
  Serious: Yes (Hospitalization)
  Sender: FDA-Public Use
  Company Number: NL-SUN PHARMACEUTICAL INDUSTRIES LTD-2018RR-170545

PATIENT
  Sex: Male
  Weight: 4 kg

DRUGS (1)
  1. OLANZAPINE. [Suspect]
     Active Substance: OLANZAPINE
     Indication: PSYCHOTIC DISORDER
     Dosage: 10 MG, DAILY
     Route: 065

REACTIONS (3)
  - Drug withdrawal syndrome neonatal [Recovered/Resolved]
  - Persistent foetal circulation [Recovered/Resolved]
  - Respiratory disorder neonatal [Recovered/Resolved]
